FAERS Safety Report 6550730-0 (Version None)
Quarter: 2010Q1

REPORT INFORMATION
  Report Type: 
  Country: None (occurrence: None)
  Receive Date: 20100122
  Receipt Date: 20100122
  Transmission Date: 20100710
  Serious: Yes (Hospitalization)
  Sender: FDA-Public Use
  Company Number: None

PATIENT
  Age: 64 Year
  Sex: Male
  Weight: 88.5 kg

DRUGS (8)
  1. ENOXAPARIN SODIUM [Suspect]
     Indication: ATRIAL FIBRILLATION
     Dosage: 80 MG BID SQ
     Route: 058
     Dates: start: 20100111, end: 20100113
  2. ENOXAPARIN SODIUM [Suspect]
     Indication: CARDIAC FAILURE CONGESTIVE
     Dosage: 80 MG BID SQ
     Route: 058
     Dates: start: 20100111, end: 20100113
  3. ENOXAPARIN SODIUM [Suspect]
     Indication: HYPERTENSION
     Dosage: 80 MG BID SQ
     Route: 058
     Dates: start: 20100111, end: 20100113
  4. ENOXAPARIN SODIUM [Suspect]
     Indication: TYPE 2 DIABETES MELLITUS
     Dosage: 80 MG BID SQ
     Route: 058
     Dates: start: 20100111, end: 20100113
  5. WARFARIN SODIUM [Suspect]
     Indication: ATRIAL FIBRILLATION
     Dosage: 4 MG EVERY DAY PO
     Route: 048
     Dates: start: 20100112, end: 20100113
  6. WARFARIN SODIUM [Suspect]
     Indication: CARDIAC FAILURE CONGESTIVE
     Dosage: 4 MG EVERY DAY PO
     Route: 048
     Dates: start: 20100112, end: 20100113
  7. WARFARIN SODIUM [Suspect]
     Indication: HYPERTENSION
     Dosage: 4 MG EVERY DAY PO
     Route: 048
     Dates: start: 20100112, end: 20100113
  8. WARFARIN SODIUM [Suspect]
     Indication: TYPE 2 DIABETES MELLITUS
     Dosage: 4 MG EVERY DAY PO
     Route: 048
     Dates: start: 20100112, end: 20100113

REACTIONS (5)
  - ABDOMINAL PAIN LOWER [None]
  - HAEMATOCRIT DECREASED [None]
  - HAEMOGLOBIN DECREASED [None]
  - HAEMORRHAGE [None]
  - URINARY BLADDER HAEMORRHAGE [None]
